FAERS Safety Report 7038099-9 (Version None)
Quarter: 2010Q4

REPORT INFORMATION
  Report Type: 
  Country: None (occurrence: None)
  Receive Date: 20101011
  Receipt Date: 20101007
  Transmission Date: 20110411
  Serious: Yes (Life-Threatening, Other)
  Sender: FDA-Public Use
  Company Number: GT-ABBOTT-10P-069-0676813-00

PATIENT
  Age: 29 Year
  Sex: Female

DRUGS (2)
  1. ALUVIA TABLETS 200MG/50MG [Suspect]
     Indication: PROPHYLAXIS
     Dosage: 200/50MG
     Route: 048
     Dates: start: 20081208
  2. LAMIVUDINE + ZIDOVUDINE [Concomitant]
     Indication: HUMAN IMMUNODEFICIENCY VIRUS TRANSMISSION
     Dosage: 300/150MG
     Route: 048
     Dates: start: 20081208

REACTIONS (1)
  - PRE-ECLAMPSIA [None]
